FAERS Safety Report 7236518-6 (Version None)
Quarter: 2011Q1

REPORT INFORMATION
  Report Type: 
  Country: None (occurrence: None)
  Receive Date: 20110120
  Receipt Date: 20110110
  Transmission Date: 20110831
  Serious: No
  Sender: FDA-Public Use
  Company Number: US-B.I. PHARMACEUTICALS,INC./RIDGEFIELD-2010-BP-15333BP

PATIENT
  Sex: Female

DRUGS (11)
  1. OSCAL [Concomitant]
     Route: 048
  2. VERAPAMIL [Concomitant]
     Dosage: 180 MG
     Route: 048
  3. VERAPAMIL [Concomitant]
     Route: 048
  4. PRADAXA [Suspect]
     Indication: ATRIAL FIBRILLATION
     Dosage: 300 MG
     Route: 048
     Dates: start: 20101206
  5. DIOVAN [Concomitant]
     Dosage: 160 MG
     Route: 048
  6. FISH OIL [Concomitant]
     Route: 048
  7. CENTRUM SILVER [Concomitant]
     Route: 048
  8. VITAMIN C COMPLEX [Concomitant]
     Route: 048
  9. VITAMIN B COMPLEX CAP [Concomitant]
     Route: 048
  10. CHROMIUM PIC. [Concomitant]
     Route: 048
  11. PRAVASTATIN [Concomitant]
     Dosage: 40 MG
     Route: 048

REACTIONS (5)
  - RECTAL HAEMORRHAGE [None]
  - ERYTHEMA [None]
  - FLATULENCE [None]
  - DIARRHOEA [None]
  - FATIGUE [None]
